FAERS Safety Report 18316494 (Version 1)
Quarter: 2020Q3

REPORT INFORMATION
  Report Type: Spontaneous
  Country: RU (occurrence: RU)
  Receive Date: 20200927
  Receipt Date: 20200927
  Transmission Date: 20201103
  Serious: Yes (Other)
  Sender: FDA-Public Use
  Company Number: RU-ROCHE-2682243

PATIENT
  Age: 35 Year
  Sex: Female

DRUGS (9)
  1. TACROLIMUS. [Concomitant]
     Active Substance: TACROLIMUS
  2. PACLITAXEL. [Suspect]
     Active Substance: PACLITAXEL
     Indication: BREAST CANCER
     Dosage: 12 DOSES OF PACLITAXEL, 4 COURSES OF PACLITAXEL+TRASTUZUMAB+PERTUZUMAB
     Route: 041
     Dates: start: 201910, end: 201912
  3. PERTUZUMAB. [Suspect]
     Active Substance: PERTUZUMAB
     Indication: BREAST CANCER
     Dosage: 12 DOSES OF PACLITAXEL, 4 COURSES OF PACLITAXEL+TRASTUZUMAB+PERTUZUMAB
     Route: 041
     Dates: start: 201910, end: 201912
  4. PERTUZUMAB. [Suspect]
     Active Substance: PERTUZUMAB
     Dosage: 4 COURSES OF TRASTUZUMAB EMTANSINE+PERTUZUMAB
     Route: 041
     Dates: start: 20200101
  5. GOSERELIN [Concomitant]
     Active Substance: GOSERELIN
     Route: 058
     Dates: start: 20200501
  6. TAMOXIFEN [Concomitant]
     Active Substance: TAMOXIFEN
     Route: 048
     Dates: start: 20200501
  7. TRASTUZUMAB EMTANSINE [Suspect]
     Active Substance: ADO-TRASTUZUMAB EMTANSINE
     Indication: BREAST CANCER
     Dosage: 4 COURSES OF TRASTUZUMAB EMTANSINE+PERTUZUMAB
     Route: 041
     Dates: start: 20200101
  8. TRASTUZUMAB. [Suspect]
     Active Substance: TRASTUZUMAB
     Indication: BREAST CANCER
     Dosage: 12 DOSES OF PACLITAXEL, 4 COURSES OF PACLITAXEL+TRASTUZUMAB+PERTUZUMAB, LOADING DOSE OF TRASTUZUMAB
     Route: 041
     Dates: start: 201910, end: 201912
  9. METYPRED [Concomitant]
     Active Substance: METHYLPREDNISOLONE

REACTIONS (2)
  - Hepatotoxicity [Unknown]
  - Diarrhoea [Unknown]
